FAERS Safety Report 8131054-7 (Version None)
Quarter: 2012Q1

REPORT INFORMATION
  Report Type: 
  Country: None (occurrence: None)
  Receive Date: 20120209
  Receipt Date: 20120209
  Transmission Date: 20120608
  Serious: Yes (Hospitalization)
  Sender: FDA-Public Use
  Company Number: None

PATIENT
  Sex: Male
  Weight: 90.49 kg

DRUGS (1)
  1. GEMCITABINE HYDROCHLORIDE [Suspect]
     Dosage: 5880 MG
     Dates: end: 20120123

REACTIONS (18)
  - PNEUMONIA [None]
  - ABDOMINAL PAIN [None]
  - PNEUMOBILIA [None]
  - BLOOD CREATININE INCREASED [None]
  - DYSPNOEA EXERTIONAL [None]
  - RENAL FAILURE ACUTE [None]
  - FLUID OVERLOAD [None]
  - HYPOXIA [None]
  - ATRIAL FIBRILLATION [None]
  - PULMONARY OEDEMA [None]
  - GLOMERULAR FILTRATION RATE DECREASED [None]
  - CONDITION AGGRAVATED [None]
  - OEDEMA PERIPHERAL [None]
  - PLEURAL EFFUSION [None]
  - NEPHROTIC SYNDROME [None]
  - CARDIAC FAILURE CONGESTIVE [None]
  - BLOOD ALBUMIN DECREASED [None]
  - PROTEINURIA [None]
